FAERS Safety Report 9851030 (Version 1)
Quarter: 2014Q1

REPORT INFORMATION
  Report Type: Spontaneous
  Country: US (occurrence: US)
  Receive Date: 20140128
  Receipt Date: 20140128
  Transmission Date: 20141002
  Serious: No
  Sender: FDA-Public Use
  Company Number: US-DYAX CORP.-2013DX000068

PATIENT
  Age: 60 Year
  Sex: Female
  Weight: 87.62 kg

DRUGS (11)
  1. KALBITOR [Suspect]
     Indication: HEREDITARY ANGIOEDEMA
     Route: 058
     Dates: start: 20130406, end: 20130406
  2. KALBITOR [Suspect]
     Dates: start: 20130406, end: 20130406
  3. KALBITOR [Suspect]
     Route: 058
     Dates: start: 20130409, end: 20130409
  4. KALBITOR [Suspect]
     Route: 058
  5. LEVOTHYROXIN [Concomitant]
     Indication: THYROIDECTOMY
     Dosage: DAILY DOSE: 137 MCG,
     Route: 048
     Dates: start: 2006
  6. SPIRONOLACTONE [Concomitant]
     Indication: HYPERADRENALISM
     Route: 048
     Dates: start: 2009
  7. CETIRIZINE [Concomitant]
     Indication: HYPERSENSITIVITY
     Route: 048
     Dates: start: 201303
  8. CETIRIZINE [Concomitant]
     Route: 048
     Dates: end: 201301
  9. ALLEGRA [Concomitant]
     Indication: HYPERSENSITIVITY
     Route: 048
     Dates: start: 20130410
  10. VITAMIN D [Concomitant]
     Indication: VITAMIN SUPPLEMENTATION
     Route: 048
     Dates: start: 2011
  11. FISH OIL [Concomitant]
     Indication: PRODUCT USED FOR UNKNOWN INDICATION
     Route: 048
     Dates: start: 2012

REACTIONS (11)
  - Chest pain [Recovered/Resolved]
  - Constipation [Unknown]
  - Gastrooesophageal reflux disease [Unknown]
  - Anxiety [Unknown]
  - Injection site pain [Recovered/Resolved]
  - Nausea [Recovered/Resolved]
  - Headache [Recovered/Resolved]
  - Nasopharyngitis [Not Recovered/Not Resolved]
  - Therapeutic response decreased [Unknown]
  - Hereditary angioedema [Unknown]
  - Incorrect route of drug administration [Unknown]
